FAERS Safety Report 5778445-7 (Version None)
Quarter: 2008Q2

REPORT INFORMATION
  Report Type: 
  Country: None (occurrence: None)
  Receive Date: 20080619
  Receipt Date: 20080609
  Transmission Date: 20081010
  Serious: Yes (Death, Other)
  Sender: FDA-Public Use
  Company Number: US-TEVA-172693USA

PATIENT
  Age: 68 Year
  Sex: Female

DRUGS (6)
  1. DAUNORUBICIN HYDROCHLORIDE 20MG BASE/10ML, 50MG BASE/20ML [Suspect]
     Indication: ACUTE MYELOID LEUKAEMIA
  2. ETOPOSIDE [Suspect]
     Indication: ACUTE MYELOID LEUKAEMIA
  3. CYTARABINE [Suspect]
     Indication: ACUTE MYELOID LEUKAEMIA
  4. NEUPOGEN [Suspect]
     Indication: ACUTE MYELOID LEUKAEMIA
     Dosage: 5 OR 10 MICROGRAM/KG/DAY
  5. MELPHALAN [Suspect]
     Indication: ACUTE MYELOID LEUKAEMIA
  6. MITOXANTRONE [Suspect]
     Indication: ACUTE MYELOID LEUKAEMIA

REACTIONS (2)
  - ACUTE MYELOID LEUKAEMIA [None]
  - MYELODYSPLASTIC SYNDROME [None]
